FAERS Safety Report 5993363-7 (Version None)
Quarter: 2008Q4

REPORT INFORMATION
  Report Type: 
  Country: None (occurrence: None)
  Receive Date: 20081204
  Receipt Date: 20070328
  Transmission Date: 20090506
  Serious: Yes (Disabling)
  Sender: FDA-Public Use
  Company Number: THYM-11336

PATIENT
  Age: 61 Year
  Sex: Male

DRUGS (5)
  1. THYMOGLOBULIN [Suspect]
     Indication: TRANSPLANT REJECTION
     Dosage: 1.5 MG/KG, QD, INTRAVENOUS ; 1.5 MG/KG, QD
     Route: 042
     Dates: end: 20060201
  2. THYMOGLOBULIN [Suspect]
     Indication: TRANSPLANT REJECTION
     Dosage: 1.5 MG/KG, QD, INTRAVENOUS ; 1.5 MG/KG, QD
     Route: 042
  3. TACROLIMUS [Concomitant]
  4. CELLCEPT [Concomitant]
  5. PREDNISONE TAB [Concomitant]

REACTIONS (1)
  - DRUG INEFFECTIVE [None]
